FAERS Safety Report 8997113 (Version 1)
Quarter: 2013Q1

REPORT INFORMATION
  Report Type: Spontaneous
  Country: US (occurrence: None)
  Receive Date: 20130102
  Receipt Date: 20130102
  Transmission Date: 20140127
  Serious: Yes (Hospitalization)
  Sender: FDA-Public Use
  Company Number: None

PATIENT
  Age: 55 Year
  Sex: Female

DRUGS (2)
  1. PEGASYS [Suspect]
     Indication: HEPATITIS C
     Dosage: 180 MCG QW SQ
     Route: 058
     Dates: start: 20120816, end: 20121215
  2. RIBAPAK [Suspect]
     Indication: HEPATITIS C
     Dosage: 1000 MG DAILY PO
     Route: 048
     Dates: start: 20120816, end: 20121216

REACTIONS (7)
  - Nausea [None]
  - Vomiting [None]
  - Fatigue [None]
  - Diarrhoea [None]
  - White blood cell count decreased [None]
  - Epistaxis [None]
  - Gastric haemorrhage [None]
